FAERS Safety Report 25232713 (Version 2)
Quarter: 2025Q4

REPORT INFORMATION
  Report Type: Spontaneous
  Country: US (occurrence: US)
  Receive Date: 20250424
  Receipt Date: 20251121
  Transmission Date: 20260118
  Serious: Yes (Hospitalization, Other)
  Sender: BRISTOL-MYERS SQUIBB COMPANY
  Company Number: US-BRISTOL-MYERS SQUIBB COMPANY-2025-055503

PATIENT
  Age: 71 Year
  Sex: Male

DRUGS (1)
  1. OPDUALAG [Suspect]
     Active Substance: NIVOLUMAB\RELATLIMAB-RMBW
     Indication: Urethral melanoma metastatic
     Dosage: FIXED COMBINATION OF NIVOLUMAB 480 MG AND RELATLIMAB 160 MG
     Route: 042

REACTIONS (3)
  - Secondary adrenocortical insufficiency [Not Recovered/Not Resolved]
  - Colitis microscopic [Recovered/Resolved]
  - Immune-mediated pancreatitis [Recovered/Resolved]
